FAERS Safety Report 10177838 (Version 1)
Quarter: 2014Q2

REPORT INFORMATION
  Report Type: Spontaneous
  Country: CA (occurrence: US)
  Receive Date: 20140516
  Receipt Date: 20140516
  Transmission Date: 20141212
  Serious: No
  Sender: FDA-Public Use
  Company Number: CA-SA-2013SA132299

PATIENT
  Age: 71 Year
  Sex: Male
  Weight: 90 kg

DRUGS (4)
  1. APIDRA SOLOSTAR [Suspect]
     Indication: DIABETES MELLITUS
     Dosage: DOSE: 1 UNIT PER 15 GM OF CARBOHYDRATE
     Route: 058
     Dates: start: 201105
  2. METFORMIN [Concomitant]
     Indication: DIABETES MELLITUS
     Dosage: START DATE=20 YRS AGO
     Route: 048
  3. LANTUS [Concomitant]
     Indication: DIABETES MELLITUS
     Route: 058
  4. SOLOSTAR [Concomitant]
     Indication: DIABETES MELLITUS

REACTIONS (2)
  - Blood glucose increased [Unknown]
  - Diarrhoea [Recovered/Resolved]
